FAERS Safety Report 5056207-6 (Version None)
Quarter: 2006Q3

REPORT INFORMATION
  Report Type: 
  Country: None (occurrence: None)
  Receive Date: 20060717
  Receipt Date: 20060705
  Transmission Date: 20061208
  Serious: Yes (Hospitalization)
  Sender: FDA-Public Use
  Company Number: 2006084134

PATIENT
  Age: 56 Year
  Sex: Female
  Weight: 89 kg

DRUGS (6)
  1. AROMASIN [Suspect]
     Indication: BREAST CANCER
     Dosage: 25 MG (25 MG, DAILY), ORAL
     Route: 048
     Dates: start: 20060526
  2. DOXORUBICIN HCL [Suspect]
     Indication: BREAST CANCER
     Dosage: 120 MG (50 MG, 3 WK), INTRAVENOUS
     Route: 042
     Dates: start: 20060526, end: 20060616
  3. PACLITAXEL [Suspect]
     Indication: BREAST CANCER
     Dosage: 400 MG (300 MG, 3 WK), INTRAVENOUS
     Route: 042
     Dates: start: 20060526, end: 20060616
  4. VALSARTAN [Concomitant]
  5. SIMVASTATIN [Concomitant]
  6. PRAZEPAM [Concomitant]

REACTIONS (1)
  - DEEP VEIN THROMBOSIS [None]
